FAERS Safety Report 4973423-X (Version None)
Quarter: 2006Q2

REPORT INFORMATION
  Report Type: 
  Country: None (occurrence: None)
  Receive Date: 20060410
  Receipt Date: 20060224
  Transmission Date: 20061013
  Serious: Yes (Other)
  Sender: FDA-Public Use
  Company Number: US017177

PATIENT
  Age: 20 Year
  Sex: Male
  Weight: 58.514 kg

DRUGS (24)
  1. ACTIQ [Suspect]
     Indication: NEPHROLITHIASIS
     Dosage: 800 UG PRN
     Dates: start: 20050628, end: 20050629
  2. ACTIQ [Suspect]
     Indication: NEPHROLITHIASIS
     Dosage: 1600 UG PRN
     Dates: start: 20050629, end: 20050630
  3. ACTIQ [Suspect]
     Indication: NEPHROLITHIASIS
     Dosage: 1200 UG PRN
     Dates: start: 20050630, end: 20050705
  4. ACTIQ [Suspect]
     Indication: NEPHROLITHIASIS
     Dosage: 1600 UG PRN
     Dates: start: 20050705, end: 20050708
  5. ACTIQ [Suspect]
     Indication: NEPHROLITHIASIS
     Dosage: 1200 UG PRN
     Dates: start: 20050708, end: 20050712
  6. ACTIQ [Suspect]
     Indication: NEPHROLITHIASIS
     Dosage: 1600 UG PRN
     Dates: start: 20050712, end: 20050815
  7. ACTIQ [Suspect]
     Indication: NEPHROLITHIASIS
     Dosage: 800 UG PRN
     Dates: start: 20050816, end: 20050818
  8. ACTIQ [Suspect]
     Indication: NEPHROLITHIASIS
     Dosage: 800 UG PRN
     Dates: start: 20050818, end: 20050822
  9. ACTIQ [Suspect]
     Indication: NEPHROLITHIASIS
     Dosage: 1600 UG PRN
     Dates: start: 20050822, end: 20050824
  10. ACTIQ [Suspect]
     Indication: NEPHROLITHIASIS
     Dosage: 800 UG PRN
     Dates: start: 20050824, end: 20050915
  11. ACTIQ [Suspect]
     Indication: NEPHROLITHIASIS
     Dosage: 1600 UG PRN
     Dates: start: 20050915, end: 20050922
  12. ACTIQ [Suspect]
     Indication: NEPHROLITHIASIS
     Dosage: 800 UG PRN
     Dates: start: 20050922
  13. DRONABINOL [Suspect]
     Indication: DECREASED APPETITE
     Dosage: 5 MG QD ORAL
     Route: 048
     Dates: start: 20050601
  14. HYDROMORPHONE HYDROCHLORIDE [Suspect]
     Dosage: 8 MG PRN ORAL
     Route: 048
     Dates: start: 20050624, end: 20050929
  15. OXYCODONE HCL [Suspect]
     Dosage: 60 MG QD ORAL
     Route: 048
     Dates: start: 20050607
  16. MEPERIDINE HYDROCHLORIDE [Suspect]
     Dosage: 150 MG PRN INTRAMUSCULAR
     Route: 030
     Dates: start: 20050707
  17. FENTANYL [Suspect]
     Dosage: 75 UG PRN TRANSDERMAL
     Route: 062
     Dates: start: 20050629
  18. MORPHINE [Suspect]
     Dosage: 20 MG PRN INTRAMUSCULAR
     Route: 030
     Dates: start: 20050822
  19. MARINOL [Suspect]
     Indication: ANOREXIA
  20. UROCIT-K [Concomitant]
  21. PROMETHAZINE HCL [Concomitant]
  22. CARISOPRODOL [Concomitant]
  23. DIAZEPAM [Concomitant]
  24. DEPAKOTE [Concomitant]

REACTIONS (4)
  - GRAND MAL CONVULSION [None]
  - TREMOR [None]
  - VISION BLURRED [None]
  - VOMITING [None]
